FAERS Safety Report 21673772 (Version 1)
Quarter: 2022Q4

REPORT INFORMATION
  Report Type: Spontaneous
  Country: US (occurrence: None)
  Receive Date: 20221201
  Receipt Date: 20221201
  Transmission Date: 20230113
  Serious: No
  Sender: FDA-Public Use
  Company Number: None

PATIENT
  Sex: 0

DRUGS (1)
  1. PROPOFOL [Suspect]
     Active Substance: PROPOFOL
     Route: 042

REACTIONS (2)
  - Product closure issue [None]
  - Accidental exposure to product [None]

NARRATIVE: CASE EVENT DATE: 20221130
